FAERS Safety Report 9193443 (Version 3)
Quarter: 2014Q1

REPORT INFORMATION
  Report Type: Spontaneous
  Country: US (occurrence: None)
  Receive Date: 20120703
  Receipt Date: 20130107
  Transmission Date: 20141002
  Serious: Yes (Hospitalization)
  Sender: FDA-Public Use
  Company Number: PHEH2012US006619

PATIENT
  Age: 39 Year
  Sex: Female

DRUGS (3)
  1. GILENYA [Suspect]
     Indication: RELAPSING-REMITTING MULTIPLE SCLEROSIS
     Route: 048
     Dates: start: 20120319
  2. LAMICTAL (LAMOTRIGINE) TABLET, 100 MG [Concomitant]
  3. GEODON (ZIPRASIDONE HYDROCHLORIDE) [Concomitant]

REACTIONS (4)
  - Urinary retention [None]
  - Fatigue [None]
  - Accidental overdose [None]
  - Multiple sclerosis [None]
